FAERS Safety Report 24914904 (Version 2)
Quarter: 2025Q1

REPORT INFORMATION
  Report Type: Spontaneous
  Country: US (occurrence: US)
  Receive Date: 20250203
  Receipt Date: 20250320
  Transmission Date: 20250409
  Serious: No
  Sender: ALEXION PHARMACEUTICALS
  Company Number: US-SA-2025SA026721

PATIENT
  Age: 4 Day
  Weight: 2.44 kg

DRUGS (3)
  1. BEYFORTUS [Suspect]
     Active Substance: NIRSEVIMAB-ALIP
     Indication: Antiviral prophylaxis
  2. HEPATITIS B VIRUS VACCINE [Concomitant]
     Active Substance: HEPATITIS B VIRUS VACCINE
     Indication: Immunisation
     Route: 065
  3. PETROLATUM [Concomitant]
     Active Substance: PETROLATUM
     Route: 065

REACTIONS (2)
  - Lethargy [Recovered/Resolved]
  - Vomiting [Unknown]
